FAERS Safety Report 7412411-0 (Version None)
Quarter: 2011Q2

REPORT INFORMATION
  Report Type: 
  Country: None (occurrence: None)
  Receive Date: 20110413
  Receipt Date: 20110329
  Transmission Date: 20111010
  Serious: Yes (Other)
  Sender: FDA-Public Use
  Company Number: PHEH2008US06121

PATIENT
  Sex: Female

DRUGS (17)
  1. OGEN [Suspect]
     Indication: HORMONE REPLACEMENT THERAPY
     Dosage: UNK
     Dates: start: 19920101, end: 20010101
  2. ACETAMINOPHEN [Concomitant]
     Indication: LABILE HYPERTENSION
     Dosage: UNK
  3. ESTRADERM [Suspect]
     Indication: HORMONE REPLACEMENT THERAPY
     Dosage: UNK
     Dates: start: 19920101, end: 20010101
  4. PREMPRO [Suspect]
     Indication: HORMONE REPLACEMENT THERAPY
     Dosage: UNK
     Dates: start: 19920101, end: 20010101
  5. AYGESTIN [Suspect]
     Indication: HORMONE REPLACEMENT THERAPY
     Dosage: UNK
     Dates: start: 19920101, end: 20010101
  6. PREMARIN [Suspect]
     Dosage: 625 MG / DAILY
     Dates: end: 19910101
  7. ACETAMINOPHEN [Concomitant]
     Indication: MIGRAINE
  8. CODEINE [Concomitant]
     Indication: LABILE HYPERTENSION
     Dosage: UNK
  9. ALENDRONATE SODIUM [Concomitant]
  10. NORLUTATE [Suspect]
     Indication: HORMONE REPLACEMENT THERAPY
     Dosage: .25 MG
     Dates: start: 19920101, end: 20010101
  11. CODEINE [Concomitant]
     Indication: MIGRAINE
  12. VIBRAMYCIN [Concomitant]
     Dosage: 100 MG / BID
     Route: 048
     Dates: start: 19920220
  13. HYDROCHLOROTHIAZIDE [Concomitant]
  14. PANTOPRAZOLE [Concomitant]
  15. ESTRADIOL [Suspect]
     Dosage: UNK
     Dates: start: 19920101, end: 20010101
  16. PROVERA [Suspect]
     Indication: HORMONE REPLACEMENT THERAPY
     Dosage: 2.5 MG / DAILY
     Dates: start: 19920101, end: 20010101
  17. ANASTROZOLE [Concomitant]

REACTIONS (17)
  - BREAST NECROSIS [None]
  - LABILE HYPERTENSION [None]
  - GLAUCOMA [None]
  - HYPERCALCAEMIA [None]
  - ANXIETY [None]
  - MIGRAINE [None]
  - PNEUMONIA [None]
  - OSTEOPENIA [None]
  - BREAST CANCER [None]
  - DEPRESSION [None]
  - FALLOPIAN TUBE DISORDER [None]
  - UTERINE LEIOMYOMA [None]
  - BREAST CANCER IN SITU [None]
  - BREAST HYPERPLASIA [None]
  - BREAST CALCIFICATIONS [None]
  - MENORRHAGIA [None]
  - HYPERCHOLESTEROLAEMIA [None]
